FAERS Safety Report 4765876-7 (Version None)
Quarter: 2005Q3

REPORT INFORMATION
  Report Type: 
  Country: None (occurrence: None)
  Receive Date: 20050908
  Receipt Date: 20050908
  Transmission Date: 20060218
  Serious: Yes (Hospitalization)
  Sender: FDA-Public Use
  Company Number: None

PATIENT
  Age: 5 Year
  Sex: Female
  Weight: 19 kg

DRUGS (5)
  1. VINCRISTINE [Suspect]
     Indication: RHABDOMYOSARCOMA
     Dosage: 1.1 MG ONE DOSE IV BOLUS
     Route: 040
     Dates: start: 20050809, end: 20050809
  2. ACTINOMYCIN [Concomitant]
  3. CYTOXAN [Concomitant]
  4. MESNA [Concomitant]
  5. GCSF [Concomitant]

REACTIONS (2)
  - CONVULSION [None]
  - LOSS OF CONSCIOUSNESS [None]
